FAERS Safety Report 7007203-0 (Version None)
Quarter: 2010Q3

REPORT INFORMATION
  Report Type: 
  Country: None (occurrence: None)
  Receive Date: 20100913
  Receipt Date: 20100908
  Transmission Date: 20110219
  Serious: Yes (Death, Life-Threatening, Hospitalization)
  Sender: FDA-Public Use
  Company Number: 2010SP047809

PATIENT
  Age: 35 Year
  Sex: Male

DRUGS (10)
  1. MIRTAZAPINE [Suspect]
     Indication: PRODUCT USED FOR UNKNOWN INDICATION
     Dosage: 15 MG; PO
     Route: 048
     Dates: start: 20091203
  2. SOLIAN (AMISULPRIDE) [Suspect]
     Indication: PRODUCT USED FOR UNKNOWN INDICATION
     Dosage: 600 MG;QD;PO
     Route: 048
     Dates: start: 20091113
  3. HALDOL DECANOAS (HALOPERIDOL DECANOATE) [Suspect]
     Indication: PRODUCT USED FOR UNKNOWN INDICATION
     Dosage: 5 DF; IM
     Route: 030
     Dates: start: 20090925
  4. LOXAPINE [Suspect]
     Indication: PRODUCT USED FOR UNKNOWN INDICATION
     Dosage: 300 GTT;QD;PO
     Route: 048
     Dates: start: 20091203
  5. TERCIAN (CYAMEMAZINE) [Suspect]
     Indication: PRODUCT USED FOR UNKNOWN INDICATION
     Dosage: 300 GTT; QD; PO
     Route: 048
     Dates: start: 20091203
  6. LORAZEPAM [Suspect]
     Indication: ANXIETY
     Dosage: 2.5 MG;QD;PO
     Route: 048
     Dates: start: 20091028
  7. LORAZEPAM [Suspect]
     Indication: ANXIETY
     Dosage: 2.5 MG;QD;PO
     Route: 048
     Dates: start: 20091203
  8. ZYPREXA [Concomitant]
  9. LEPTICUR [Concomitant]
  10. TAHOR [Concomitant]

REACTIONS (4)
  - ARRHYTHMIA [None]
  - BLOOD PRESSURE DECREASED [None]
  - CARDIAC ARREST [None]
  - RESPIRATORY DISORDER [None]
